FAERS Safety Report 16852899 (Version 1)
Quarter: 2019Q3

REPORT INFORMATION
  Report Type: Spontaneous
  Country: US (occurrence: US)
  Receive Date: 20190802
  Receipt Date: 20190802
  Transmission Date: 20191005
  Serious: Yes (Hospitalization)
  Sender: FDA-Public Use
  Company Number: None

PATIENT
  Age: 44 Year
  Sex: Male

DRUGS (16)
  1. FAMOTIDINE. [Concomitant]
     Active Substance: FAMOTIDINE
  2. ONDANSETRON [Concomitant]
     Active Substance: ONDANSETRON
  3. PIPERACILLIN/TAZOBACTAM [Concomitant]
     Active Substance: PIPERACILLIN SODIUM\TAZOBACTAM SODIUM
  4. SODIUM CHLORIDE NASAL SPRAY [Concomitant]
  5. URSODIAL [Concomitant]
  6. ACYCLOVIR. [Concomitant]
     Active Substance: ACYCLOVIR
  7. HYDROXYZINE [Concomitant]
     Active Substance: HYDROXYZINE HYDROCHLORIDE
  8. LOPERAMIDE [Concomitant]
     Active Substance: LOPERAMIDE
  9. LISINOPRIL. [Suspect]
     Active Substance: LISINOPRIL
     Indication: HYPERTENSION
     Route: 048
     Dates: start: 20190508, end: 20190517
  10. LABETALOL [Concomitant]
     Active Substance: LABETALOL\LABETALOL HYDROCHLORIDE
  11. POSACONAZOLE [Concomitant]
     Active Substance: POSACONAZOLE
  12. MYCOPHENOLATE [Concomitant]
     Active Substance: MYCOPHENOLIC ACID
  13. LANSOPRAZOLE. [Concomitant]
     Active Substance: LANSOPRAZOLE
  14. TACROLIMUS. [Concomitant]
     Active Substance: TACROLIMUS
  15. NIFEDIPINE. [Concomitant]
     Active Substance: NIFEDIPINE
  16. VANCOMYCIN [Concomitant]
     Active Substance: VANCOMYCIN

REACTIONS (8)
  - Acute kidney injury [None]
  - Increased upper airway secretion [None]
  - Swollen tongue [None]
  - Dysphagia [None]
  - Angioedema [None]
  - Lip swelling [None]
  - Swelling [None]
  - Odynophagia [None]

NARRATIVE: CASE EVENT DATE: 20190517
